FAERS Safety Report 7154005-0 (Version None)
Quarter: 2010Q4

REPORT INFORMATION
  Report Type: 
  Country: None (occurrence: None)
  Receive Date: 20101213
  Receipt Date: 20101202
  Transmission Date: 20110411
  Serious: Yes (Other)
  Sender: FDA-Public Use
  Company Number: DE-PFIZER INC-2010154094

PATIENT
  Age: 66 Year
  Sex: Female
  Weight: 61 kg

DRUGS (5)
  1. LYRICA [Suspect]
     Indication: NEURALGIA
     Dosage: 75 MG, 3X/DAY
     Route: 048
     Dates: start: 20080101, end: 20100901
  2. LYRICA [Suspect]
     Dosage: 75 MG DAILY
     Route: 048
     Dates: start: 20100901, end: 20100901
  3. LYRICA [Suspect]
     Dosage: 25 MG DAILY
     Route: 048
     Dates: start: 20100901, end: 20101110
  4. METOPROLOL [Concomitant]
     Indication: HYPERTENSION
     Dosage: 25 MG DAILY (HALF OF 50 MG)
     Route: 048
  5. AMITRIPTYLINE [Concomitant]
     Indication: TINNITUS
     Dosage: 10 MG, DAILY
     Route: 048

REACTIONS (7)
  - BACK PAIN [None]
  - CHEST PAIN [None]
  - DEPRESSIVE SYMPTOM [None]
  - NECK PAIN [None]
  - NERVOUSNESS [None]
  - PALPITATIONS [None]
  - WITHDRAWAL SYNDROME [None]
